FAERS Safety Report 20645878 (Version 2)
Quarter: 2023Q4

REPORT INFORMATION
  Report Type: Spontaneous
  Country: US (occurrence: US)
  Receive Date: 20220329
  Receipt Date: 20231211
  Transmission Date: 20240109
  Serious: Yes (Hospitalization, Other)
  Sender: FDA-Public Use
  Company Number: US-RISINGPHARMA-US-2022RISLIT00284

PATIENT
  Age: 44 Year
  Sex: Male

DRUGS (3)
  1. LIDOCAINE HYDROCHLORIDE [Suspect]
     Active Substance: DEXTROSE MONOHYDRATE\EPINEPHRINE\EPINEPHRINE BITARTRATE\LIDOCAINE\LIDOCAINE HYDROCHLORIDE\LIDOCAINE
     Indication: Local anaesthesia
     Route: 065
  2. MIDAZOLAM [Concomitant]
     Active Substance: MIDAZOLAM
     Indication: Cardiac arrest
     Route: 065
  3. EPINEPHRINE [Concomitant]
     Active Substance: EPINEPHRINE
     Indication: Cardiac arrest
     Route: 065

REACTIONS (2)
  - Peroneal nerve palsy [Unknown]
  - Toxicity to various agents [Unknown]
